FAERS Safety Report 20136392 (Version 1)
Quarter: 2021Q4

REPORT INFORMATION
  Report Type: Spontaneous
  Country: BR (occurrence: BR)
  Receive Date: 20211201
  Receipt Date: 20211201
  Transmission Date: 20220303
  Serious: Yes (Life-Threatening, Other)
  Sender: FDA-Public Use
  Company Number: BR-NOVARTISPH-NVSC2021BR270638

PATIENT
  Sex: Female

DRUGS (7)
  1. RYDAPT [Suspect]
     Active Substance: MIDOSTAURIN
     Indication: Product used for unknown indication
     Dosage: 50 MG, Q12H
     Route: 065
     Dates: start: 20211118
  2. VANCOMYCIN [Concomitant]
     Active Substance: VANCOMYCIN
     Indication: Product used for unknown indication
     Dosage: 1 G, Q12H (FROM 18 NOV (YEAR UNSPECIFIED))
     Route: 065
  3. CEFEPIME [Concomitant]
     Active Substance: CEFEPIME HYDROCHLORIDE
     Indication: Product used for unknown indication
     Dosage: 2 G, Q8H (FROM 17 NOV TO 17 NOV (YEAR UNSPECIFIED))
     Route: 065
  4. ACYCLOVIR [Concomitant]
     Active Substance: ACYCLOVIR
     Indication: Product used for unknown indication
     Dosage: 250 MG, Q12H (FROM 18 NOV (YEAR UNSPECIFIED))
     Route: 065
  5. MEROPENEM [Concomitant]
     Active Substance: MEROPENEM
     Indication: Product used for unknown indication
     Dosage: 1 G, Q8H (FROM 18 NOV (YEAR UNSPECIFIED))
     Route: 065
  6. FLUCONAZOLE [Concomitant]
     Active Substance: FLUCONAZOLE
     Indication: Product used for unknown indication
     Dosage: (FROM 18 NOV (YEAR UNSPECIFIED))UNK
     Route: 065
  7. SUGASTRIN [Concomitant]
     Indication: Product used for unknown indication
     Dosage: UNK
     Route: 065

REACTIONS (3)
  - Respiratory failure [Unknown]
  - Aplastic anaemia [Not Recovered/Not Resolved]
  - Bronchospasm [Unknown]

NARRATIVE: CASE EVENT DATE: 20211122
